FAERS Safety Report 5066533-2 (Version None)
Quarter: 2006Q3

REPORT INFORMATION
  Report Type: 
  Country: None (occurrence: None)
  Receive Date: 20060728
  Receipt Date: 20060725
  Transmission Date: 20061208
  Serious: Yes (Other)
  Sender: FDA-Public Use
  Company Number: STA-AE-06-049

PATIENT
  Age: 61 Year
  Sex: Male

DRUGS (1)
  1. NAPROXEN [Suspect]
     Dosage: 500 MG

REACTIONS (3)
  - ANAPHYLACTIC REACTION [None]
  - LOSS OF CONSCIOUSNESS [None]
  - RESPIRATORY DISTRESS [None]
